FAERS Safety Report 9832545 (Version 2)
Quarter: 2014Q1

REPORT INFORMATION
  Report Type: Spontaneous
  Country: US (occurrence: US)
  Receive Date: 20140121
  Receipt Date: 20140321
  Transmission Date: 20141002
  Serious: Yes (Hospitalization, Other)
  Sender: FDA-Public Use
  Company Number: US-ELI_LILLY_AND_COMPANY-US201401004347

PATIENT
  Age: 67 Year
  Sex: Male
  Weight: 149 kg

DRUGS (8)
  1. HUMULIN 30% REGULAR, 70% NPH [Suspect]
     Indication: TYPE 2 DIABETES MELLITUS
     Dosage: 55 U, BID
     Route: 058
     Dates: start: 2003
  2. HUMULIN 30% REGULAR, 70% NPH [Suspect]
     Dosage: 55 U, BID
     Route: 058
     Dates: end: 20140108
  3. HUMULIN 30% REGULAR, 70% NPH [Suspect]
     Dosage: 55 U, BID
     Route: 058
     Dates: start: 201401
  4. HUMULIN 30% REGULAR, 70% NPH [Suspect]
     Indication: TYPE 2 DIABETES MELLITUS
     Dosage: 55 U, BID
     Route: 058
     Dates: start: 20140109, end: 20140114
  5. METFORMIN [Concomitant]
  6. STATIN                             /00084401/ [Concomitant]
  7. LISINOPRIL [Concomitant]
  8. NOVOLIN 30R                        /00806401/ [Concomitant]
     Dosage: UNK

REACTIONS (5)
  - Myocardial infarction [Recovered/Resolved]
  - Paraesthesia [Recovered/Resolved]
  - Blood glucose increased [Unknown]
  - Injury associated with device [Unknown]
  - Underdose [Recovered/Resolved]
